FAERS Safety Report 4570569-5 (Version None)
Quarter: 2005Q1

REPORT INFORMATION
  Report Type: 
  Country: None (occurrence: None)
  Receive Date: 20050202
  Receipt Date: 20050202
  Transmission Date: 20050727
  Serious: Yes (Other)
  Sender: FDA-Public Use
  Company Number: None

PATIENT
  Age: 43 Year
  Sex: Female
  Weight: 50.8029 kg

DRUGS (1)
  1. LEVOTHYROXINE -GENERIC-   112 [Suspect]
     Indication: HYPOTHYROIDISM
     Dosage: 1 DAILY  ORAL
     Route: 048
     Dates: start: 20050124, end: 20050201

REACTIONS (8)
  - DIZZINESS [None]
  - DRUG EFFECT DECREASED [None]
  - FEELING COLD [None]
  - HEART RATE INCREASED [None]
  - INSOMNIA [None]
  - NAUSEA [None]
  - PHARMACEUTICAL PRODUCT COMPLAINT [None]
  - TREMOR [None]
